FAERS Safety Report 9413273 (Version 1)
Quarter: 2013Q3

REPORT INFORMATION
  Report Type: Spontaneous
  Country: US (occurrence: US)
  Receive Date: 20130722
  Receipt Date: 20130722
  Transmission Date: 20140515
  Serious: Yes (Other)
  Sender: FDA-Public Use
  Company Number: CHPA2013US011043

PATIENT
  Age: 37 Year
  Sex: Male

DRUGS (3)
  1. EXCEDRIN EXTRA STRENGTH [Suspect]
     Indication: HEADACHE
     Dosage: 2 DF, Q6H
     Route: 048
     Dates: end: 201307
  2. EXCEDRIN EXTRA STRENGTH [Suspect]
     Dosage: 2-3 DF, ALMOST EVERDAY
     Route: 048
  3. XANAX [Concomitant]
     Dosage: UNK
     Route: 048

REACTIONS (8)
  - Renal disorder [Unknown]
  - Renal injury [Unknown]
  - Urinary tract infection [Recovered/Resolved]
  - Blood urine present [Recovered/Resolved]
  - Drug dependence [Not Recovered/Not Resolved]
  - Pollakiuria [Unknown]
  - Incorrect drug administration duration [Unknown]
  - Incorrect dose administered [Unknown]
